FAERS Safety Report 5620692-9 (Version None)
Quarter: 2008Q1

REPORT INFORMATION
  Report Type: 
  Country: None (occurrence: None)
  Receive Date: 20080208
  Receipt Date: 20080129
  Transmission Date: 20080703
  Serious: Yes (Hospitalization, Other)
  Sender: FDA-Public Use
  Company Number: US-ABBOTT-08P-163-0435581-00

PATIENT
  Sex: Female
  Weight: 49.94 kg

DRUGS (5)
  1. HUMIRA [Suspect]
     Indication: CROHN'S DISEASE
     Route: 058
     Dates: start: 20070401, end: 20071101
  2. BUDESONIDE [Concomitant]
     Indication: CROHN'S DISEASE
     Route: 048
     Dates: start: 20010101
  3. PREDNISONE TAB [Concomitant]
     Indication: CROHN'S DISEASE
     Route: 048
  4. CHOLAZAL [Concomitant]
     Indication: CROHN'S DISEASE
     Route: 048
  5. LIALDA [Concomitant]
     Indication: CROHN'S DISEASE
     Route: 048

REACTIONS (8)
  - BACK PAIN [None]
  - CHEST PAIN [None]
  - COELIAC ARTERY STENOSIS [None]
  - EMBOLISM [None]
  - OVERDOSE [None]
  - RECTAL HAEMORRHAGE [None]
  - SYNCOPE [None]
  - THROMBOSIS [None]
